FAERS Safety Report 7069641-X (Version None)
Quarter: 2010Q4

REPORT INFORMATION
  Report Type: 
  Country: None (occurrence: None)
  Receive Date: 20101028
  Receipt Date: 20100621
  Transmission Date: 20110411
  Serious: No
  Sender: FDA-Public Use
  Company Number: US-WYE-H14447910

PATIENT
  Sex: Female
  Weight: 68.1 kg

DRUGS (4)
  1. EFFEXOR [Suspect]
     Indication: CATAPLEXY
     Route: 048
     Dates: start: 20100306, end: 20100306
  2. XOPENEX [Concomitant]
  3. SYNTHROID [Concomitant]
  4. SINGULAIR [Concomitant]

REACTIONS (2)
  - ASTHMA [None]
  - NAUSEA [None]
